FAERS Safety Report 21755479 (Version 1)
Quarter: 2022Q4

REPORT INFORMATION
  Report Type: Report from Study
  Country: CA (occurrence: CA)
  Receive Date: 20221220
  Receipt Date: 20221220
  Transmission Date: 20230113
  Serious: Yes (Other)
  Sender: FDA-Public Use
  Company Number: CA-AstraZeneca-2022A407156

PATIENT
  Age: 62 Year
  Sex: Female
  Weight: 52.9 kg

DRUGS (1)
  1. ENHERTU [Suspect]
     Active Substance: FAM-TRASTUZUMAB DERUXTECAN-NXKI
     Indication: Breast cancer metastatic
     Dosage: 279 MG, ONCE EVERY 3 WK
     Route: 042
     Dates: start: 20221209

REACTIONS (2)
  - Blood pressure increased [Unknown]
  - Nervousness [Unknown]

NARRATIVE: CASE EVENT DATE: 20221209
